FAERS Safety Report 5486106-7 (Version None)
Quarter: 2007Q4

REPORT INFORMATION
  Report Type: 
  Country: None (occurrence: None)
  Receive Date: 20071012
  Receipt Date: 20071005
  Transmission Date: 20080405
  Serious: Yes (Other)
  Sender: FDA-Public Use
  Company Number: 2007SP020320

PATIENT
  Age: 39 Year
  Sex: Female

DRUGS (2)
  1. PEG-INTRON [Suspect]
     Indication: HEPATITIS C
     Dosage: SC
     Route: 058
     Dates: start: 20070827
  2. RIBAVIRIN [Suspect]
     Indication: HEPATITIS C
     Dosage: PO
     Route: 048
     Dates: start: 20070827

REACTIONS (8)
  - ABDOMINAL DISTENSION [None]
  - ANGER [None]
  - CHAPPED LIPS [None]
  - DEPRESSION [None]
  - DYSPNOEA [None]
  - OEDEMA [None]
  - RECTAL HAEMORRHAGE [None]
  - SUICIDAL IDEATION [None]
